FAERS Safety Report 20421584 (Version 1)
Quarter: 2022Q1

REPORT INFORMATION
  Report Type: Other
  Country: CA (occurrence: CA)
  Receive Date: 20220203
  Receipt Date: 20220203
  Transmission Date: 20220423
  Serious: Yes (Hospitalization)
  Sender: FDA-Public Use
  Company Number: CA-PFIZER INC-202200148535

PATIENT
  Age: 6 Decade
  Sex: Male

DRUGS (14)
  1. GABAPENTIN [Suspect]
     Active Substance: GABAPENTIN
     Dosage: 600 MG, 3X/DAY
     Route: 048
  2. ARIPIPRAZOLE [Suspect]
     Active Substance: ARIPIPRAZOLE
     Dosage: UNK
     Route: 065
  3. BENZTROPINE [Suspect]
     Active Substance: BENZTROPINE
     Dosage: 2 MG, 1X/DAY
     Route: 048
  4. DIVALPROEX SODIUM [Suspect]
     Active Substance: DIVALPROEX SODIUM
     Dosage: 500 MG, 1X/DAY
     Route: 048
  5. DIVALPROEX SODIUM [Suspect]
     Active Substance: DIVALPROEX SODIUM
     Dosage: 1000 MG, 1X/DAY
     Route: 048
  6. PAROXETINE [Suspect]
     Active Substance: PAROXETINE
     Dosage: 10 MG, 1X/DAY
     Route: 048
  7. PAROXETINE [Suspect]
     Active Substance: PAROXETINE
     Dosage: 20 MG, 1X/DAY
     Route: 048
  8. RISPERIDONE [Suspect]
     Active Substance: RISPERIDONE
     Dosage: 0.25 MG, 1X/DAY
     Route: 048
  9. SAPHRIS [Suspect]
     Active Substance: ASENAPINE MALEATE
     Dosage: 5 MG, 1X/DAY
     Route: 065
  10. BISOPROLOL [Concomitant]
     Active Substance: BISOPROLOL
     Dosage: UNK
     Route: 065
  11. DESMOPRESSIN [Concomitant]
     Active Substance: DESMOPRESSIN
     Dosage: UNK
  12. MEDROXYPROGESTERONE [Concomitant]
     Active Substance: MEDROXYPROGESTERONE
     Dosage: UNK
  13. QUINAPRIL [Concomitant]
     Active Substance: QUINAPRIL
     Dosage: UNK
  14. ROSUVASTATIN [Concomitant]
     Active Substance: ROSUVASTATIN
     Dosage: UNK
     Route: 058

REACTIONS (5)
  - Cogwheel rigidity [Not Recovered/Not Resolved]
  - Extrapyramidal disorder [Not Recovered/Not Resolved]
  - Head titubation [Not Recovered/Not Resolved]
  - Sedation complication [Not Recovered/Not Resolved]
  - Serotonin syndrome [Not Recovered/Not Resolved]
